FAERS Safety Report 9993206 (Version 2)
Quarter: 2014Q1

REPORT INFORMATION
  Report Type: Spontaneous
  Country: IT (occurrence: IT)
  Receive Date: 20140310
  Receipt Date: 20140310
  Transmission Date: 20141002
  Serious: Yes (Hospitalization)
  Sender: FDA-Public Use
  Company Number: PHHY2014IT016937

PATIENT
  Age: 56 Year
  Sex: Female

DRUGS (2)
  1. PACLITAXEL [Suspect]
     Indication: ADENOCARCINOMA
     Dosage: 60 MG/M2, CYCLIC
     Route: 042
     Dates: start: 20131101, end: 20140129
  2. CARBOPLATIN [Concomitant]
     Dosage: UNK
     Dates: start: 20131104, end: 20140129

REACTIONS (4)
  - Dyspepsia [Recovered/Resolved]
  - Dyspnoea [Recovered/Resolved]
  - Erythema [Recovered/Resolved]
  - Nausea [Recovered/Resolved]
